FAERS Safety Report 20044441 (Version 1)
Quarter: 2021Q4

REPORT INFORMATION
  Report Type: Spontaneous
  Country: US (occurrence: None)
  Receive Date: 20211108
  Receipt Date: 20211108
  Transmission Date: 20220303
  Serious: No
  Sender: FDA-Public Use
  Company Number: 2021A796572

PATIENT
  Age: 53 Year
  Sex: Female

DRUGS (1)
  1. PULMICORT FLEXHALER [Suspect]
     Active Substance: BUDESONIDE
     Indication: Post-acute COVID-19 syndrome
     Dosage: 180.0UG AS REQUIRED
     Route: 055
     Dates: start: 20211005

REACTIONS (5)
  - Ill-defined disorder [Recovered/Resolved]
  - Device delivery system issue [Not Recovered/Not Resolved]
  - Device use issue [Unknown]
  - Drug ineffective [Not Recovered/Not Resolved]
  - Product prescribing issue [Not Recovered/Not Resolved]

NARRATIVE: CASE EVENT DATE: 20211001
